FAERS Safety Report 9877709 (Version 1)
Quarter: 2014Q1

REPORT INFORMATION
  Report Type: Spontaneous
  Country: US (occurrence: None)
  Receive Date: 20140204
  Receipt Date: 20140204
  Transmission Date: 20141002
  Serious: Yes (Other)
  Sender: FDA-Public Use
  Company Number: 2014UCU075000066

PATIENT
  Age: 42 Year
  Sex: Male
  Weight: 69 kg

DRUGS (22)
  1. CIMZIA [Suspect]
     Indication: CROHN^S DISEASE
     Dates: start: 201307
  2. METHOTREXATE [Suspect]
     Indication: CROHN^S DISEASE
     Dates: start: 20130606
  3. IBUPROFEN [Concomitant]
  4. CITRUCEL [Concomitant]
  5. METAMUCIL [Concomitant]
  6. OMEPRAZOLE [Concomitant]
  7. ESOMEPRAZOLE [Concomitant]
  8. PROTONIX [Concomitant]
  9. ZANTAC [Concomitant]
  10. B6 [Concomitant]
  11. VITAMIN C [Concomitant]
  12. FOLIC ACID [Concomitant]
  13. RANITIDINE [Concomitant]
  14. LOPERAMIDE [Concomitant]
  15. BENADRYL /01563701/ [Concomitant]
  16. CITALOPRAM HYDROBROMIDE [Concomitant]
  17. SIMETHICONE [Concomitant]
  18. MESALAMINE [Concomitant]
  19. METRONIDAZOLE [Concomitant]
  20. PREDNISONE [Concomitant]
  21. AZATHIOPRINE [Concomitant]
  22. INFLIXIMAB [Concomitant]

REACTIONS (4)
  - Psoriasis [None]
  - Autoimmune disorder [None]
  - Rash [None]
  - Nail bed disorder [None]
